FAERS Safety Report 16910977 (Version 1)
Quarter: 2019Q4

REPORT INFORMATION
  Report Type: Spontaneous
  Country: DK (occurrence: DK)
  Receive Date: 20191012
  Receipt Date: 20191012
  Transmission Date: 20200122
  Serious: Yes (Death, Hospitalization)
  Sender: FDA-Public Use
  Company Number: DK-009507513-1910DNK006331

PATIENT
  Age: 73 Year
  Sex: Male

DRUGS (20)
  1. ACETAMINOPHEN. [Concomitant]
     Active Substance: ACETAMINOPHEN
     Indication: PAIN
     Dosage: 4000 MILLIGRAM, QD
     Route: 048
     Dates: start: 20180110
  2. CITALOPRAM [Concomitant]
     Active Substance: CITALOPRAM HYDROBROMIDE
     Indication: DEPRESSION
     Dosage: 40 MILLIGRAM, QD
     Route: 048
     Dates: start: 20170202
  3. SODIUM PICOSULFATE [Concomitant]
     Active Substance: SODIUM PICOSULFATE
     Indication: CONSTIPATION
     Dosage: DOSE: ACCORDING TO PRESCRIPTION. STRENGTH: 7.5 MG/ML
     Route: 048
     Dates: start: 20190701
  4. HYDROCORTISONE (+) MICONAZOLE NITRATE [Concomitant]
     Indication: FUNGAL SKIN INFECTION
     Dosage: 2 DOSAGE FORM, QD (STRENGTH: 20+10 MG/G)
     Route: 003
     Dates: start: 20180328
  5. KEYTRUDA [Suspect]
     Active Substance: PEMBROLIZUMAB
     Indication: BLADDER CANCER
     Dosage: 1 DOSAGE FORM, Q3, 183 MG
     Route: 042
     Dates: start: 20190701
  6. KEYTRUDA [Suspect]
     Active Substance: PEMBROLIZUMAB
     Dosage: 1 DOSAGE FORM, Q3, 165 MG
     Route: 042
     Dates: start: 20190722
  7. SODIUM CHLORIDE. [Concomitant]
     Active Substance: SODIUM CHLORIDE
     Indication: DRY EYE
     Dosage: STRENGTH: 3.5 MG/ML. DOSE: 1 DROP AS NECESSARY A MAXIMUM OF 1 TIME DAILY.
     Route: 050
     Dates: start: 20170707
  8. ATORVASTATIN [Concomitant]
     Active Substance: ATORVASTATIN
     Indication: HYPERCHOLESTEROLAEMIA
     Dosage: 40 MILLIGRAM, QD (EXACT START DATE UNKNOWN BUT DEFINITELY SINCE OCT-2017)
     Route: 048
  9. OXYCODONE [Concomitant]
     Active Substance: OXYCODONE
     Indication: PAIN
     Dosage: 60 MILLIGRAM, QD (EXACT START DATE UNKNOWN)
     Route: 048
     Dates: start: 201710
  10. SPIOLTO RESPIMAT [Concomitant]
     Active Substance: OLODATEROL HYDROCHLORIDE\TIOTROPIUM BROMIDE MONOHYDRATE
     Indication: CHRONIC OBSTRUCTIVE PULMONARY DISEASE
     Dosage: 2 DOSAGE FORM, QD
     Route: 055
     Dates: start: 20170620
  11. IBUPROFEN. [Concomitant]
     Active Substance: IBUPROFEN
     Indication: PAIN
     Dosage: 1800 MILLIGRAM, QD (EXACT START DATE UNKNOWN)
     Route: 048
     Dates: start: 201710
  12. PREDNISOLONE. [Concomitant]
     Active Substance: PREDNISOLONE
     Indication: ADRENOCORTICAL STEROID THERAPY
     Dosage: 37.5 MG, QD
     Route: 048
     Dates: start: 20190822
  13. KEYTRUDA [Suspect]
     Active Substance: PEMBROLIZUMAB
     Dosage: 1 DOSAGE FORM, Q3, 165 MG
     Route: 042
     Dates: start: 20190812, end: 20190812
  14. ACETYLCYSTEINE. [Concomitant]
     Active Substance: ACETYLCYSTEINE
     Indication: COUGH
     Dosage: 600 MILLIGRAM, QD (EXACT START DATE UNKNOWN)
     Route: 048
     Dates: start: 201711
  15. PANTOPRAZOLE [Concomitant]
     Active Substance: PANTOPRAZOLE
     Indication: GASTROINTESTINAL ULCER
     Dosage: EXACT START DATE UNKNOWN
     Route: 048
     Dates: start: 201710
  16. DICLOFENAC [Concomitant]
     Active Substance: DICLOFENAC
     Indication: PAIN
     Dosage: 1 DOSAGE FORM,AS NECESSARY (STRENGTH: 11.6 MG/G, DOSE: MAXIMUM 4 TIMES DAILY) (EXACT START DATE UNKN
     Route: 003
     Dates: start: 201712
  17. MORPHINE [Concomitant]
     Active Substance: MORPHINE
     Indication: PAIN
     Dosage: 60 MILLIGRAM, QD
     Route: 048
     Dates: start: 20180305
  18. CLOPIDOGREL [Concomitant]
     Active Substance: CLOPIDOGREL BISULFATE
     Indication: CARDIOVASCULAR EVENT PROPHYLAXIS
     Dosage: 75 MILLIGRAM, QD (EXACT START DATE UNKNOWN)
     Route: 048
     Dates: start: 201710
  19. MAGNESIUM HYDROXIDE. [Concomitant]
     Active Substance: MAGNESIUM HYDROXIDE
     Indication: CONSTIPATION
     Dosage: 1000 MG, 2 TABLETS AS NECESSARY A MAXIMUM OF 1 TIME DAILY.
     Route: 048
     Dates: start: 20180326
  20. CETIRIZINE HYDROCHLORIDE. [Concomitant]
     Active Substance: CETIRIZINE HYDROCHLORIDE
     Indication: SEASONAL ALLERGY
     Dosage: 10 MILLIGRAM, QD (EXACT START DATE UNKNOWN BUT DEFINITELY SINCE DEC-2017)
     Route: 048

REACTIONS (1)
  - Necrotising fasciitis [Fatal]

NARRATIVE: CASE EVENT DATE: 20190829
